FAERS Safety Report 8866301 (Version 2)
Quarter: 2012Q4

REPORT INFORMATION
  Report Type: Report from Study
  Country: DE (occurrence: DE)
  Receive Date: 20121025
  Receipt Date: 20121105
  Transmission Date: 20130627
  Serious: Yes (Death, Other)
  Sender: FDA-Public Use
  Company Number: DE-ROCHE-1148725

PATIENT
  Sex: Male
  Weight: 84 kg

DRUGS (2)
  1. METHOXY POLYETHYLENE GLYCOL-EPOETIN BETA [Suspect]
     Indication: NEPHROGENIC ANAEMIA
     Route: 042
     Dates: start: 20110514, end: 20110530
  2. METHOXY POLYETHYLENE GLYCOL-EPOETIN BETA [Suspect]
     Route: 042
     Dates: start: 20110914, end: 20111002

REACTIONS (4)
  - Cardiovascular disorder [Fatal]
  - Haemoglobin decreased [Not Recovered/Not Resolved]
  - Urosepsis [Unknown]
  - Finger amputation [Unknown]
